FAERS Safety Report 9024501 (Version 1)
Quarter: 2013Q1

REPORT INFORMATION
  Report Type: Report from Study
  Country: CA (occurrence: CA)
  Receive Date: 20130121
  Receipt Date: 20130121
  Transmission Date: 20140127
  Serious: Yes (Other)
  Sender: FDA-Public Use
  Company Number: CA-JNJFOC-20130107684

PATIENT
  Age: 37 None
  Sex: Female
  Weight: 88 kg

DRUGS (1)
  1. REMICADE [Suspect]
     Indication: CROHN^S DISEASE
     Route: 042
     Dates: start: 201011

REACTIONS (4)
  - Haematuria [Unknown]
  - Pain [Unknown]
  - Diarrhoea [Unknown]
  - Abdominal pain lower [Unknown]
